FAERS Safety Report 6616354-1 (Version None)
Quarter: 2010Q1

REPORT INFORMATION
  Report Type: 
  Country: None (occurrence: None)
  Receive Date: 20100226
  Receipt Date: 20100211
  Transmission Date: 20100710
  Serious: Yes (Hospitalization)
  Sender: FDA-Public Use
  Company Number: 2010SA009477

PATIENT
  Age: 72 Year
  Sex: Female

DRUGS (16)
  1. FLUDARABINE PHOSPHATE (FLUDARABINE PHOSPHATE/ UNKNOWN / UNKNOWN [Suspect]
     Indication: CHRONIC LYMPHOCYTIC LEUKAEMIA
     Dosage: 40 MILLIGRAM(S); MONTHLY; ORAL
     Route: 048
     Dates: start: 20090417, end: 20090913
  2. CYCLOPHOSPHAMIDE [Suspect]
     Indication: CHRONIC LYMPHOCYTIC LEUKAEMIA
     Dosage: 300 MILLIGRAM(S); ORAL
     Route: 048
     Dates: start: 20090417, end: 20090913
  3. RITUXIMAB (RITUXIMAB) [Suspect]
     Indication: CHRONIC LYMPHOCYTIC LEUKAEMIA
     Dosage: 965 MILLIGRAM(S); INTRAVENOUS
     Route: 042
     Dates: start: 20090417, end: 20090911
  4. AMLODIPINE [Concomitant]
  5. METOPROLOL TARTRATE [Concomitant]
  6. HYDRENE [Concomitant]
  7. CYCLOSPORINE [Concomitant]
  8. COLOXYL WITH SENNA [Concomitant]
  9. METOCLOPRAMIDE [Concomitant]
  10. TRAMADOL HCL [Concomitant]
  11. FOLIC ACID [Concomitant]
  12. PARACETAMOL [Concomitant]
  13. CLEXANE [Concomitant]
  14. TEMAZEPAM [Concomitant]
  15. OMEPRAZOLE [Concomitant]
  16. VALTREX [Concomitant]

REACTIONS (5)
  - BLOOD UREA INCREASED [None]
  - BLOOD URIC ACID INCREASED [None]
  - DEHYDRATION [None]
  - NAUSEA [None]
  - VOMITING [None]
